FAERS Safety Report 7867069-3 (Version None)
Quarter: 2011Q4

REPORT INFORMATION
  Report Type: 
  Country: None (occurrence: None)
  Receive Date: 20111028
  Receipt Date: 20111012
  Transmission Date: 20120403
  Serious: Yes (Hospitalization)
  Sender: FDA-Public Use
  Company Number: FR-BRISTOL-MYERS SQUIBB COMPANY-16176950

PATIENT
  Age: 36 Year
  Sex: Female

DRUGS (4)
  1. CETUXIMAB [Suspect]
     Indication: COLORECTAL CANCER METASTATIC
     Dosage: INJ RECENT INFUSION 01JAN2009
     Route: 042
     Dates: start: 20081205
  2. FLUOROURACIL [Suspect]
     Indication: COLORECTAL CANCER METASTATIC
     Dosage: TAKEN AS IVPC OVER 46 HRS RECENT INFUSION ON 1JAN2009
     Route: 040
     Dates: start: 20081205
  3. LEUCOVORIN CALCIUM [Suspect]
     Indication: COLORECTAL CANCER METASTATIC
     Dosage: INJ RECENT INFUSION ON 1JAN2009
     Dates: start: 20081205
  4. OXALIPLATIN [Suspect]
     Indication: COLORECTAL CANCER METASTATIC
     Dosage: INJ RECENT INFUSION ON 1JAN2009
     Route: 013
     Dates: start: 20081205

REACTIONS (2)
  - FEBRILE NEUTROPENIA [None]
  - ILEITIS [None]
